FAERS Safety Report 24092119 (Version 2)
Quarter: 2024Q3

REPORT INFORMATION
  Report Type: Report from Study
  Country: FR (occurrence: FR)
  Receive Date: 20240715
  Receipt Date: 20240730
  Transmission Date: 20241016
  Serious: Yes (Death, Hospitalization)
  Sender: DAIICHI
  Company Number: FR-DSJP-DSE-2024-135592

PATIENT
  Sex: Female
  Weight: 85 kg

DRUGS (3)
  1. ENHERTU [Suspect]
     Active Substance: FAM-TRASTUZUMAB DERUXTECAN-NXKI
     Indication: HER2 low breast cancer
     Dosage: 5.4 MG/KG, CYCLIC
     Route: 065
     Dates: start: 20240503
  2. ENHERTU [Suspect]
     Active Substance: FAM-TRASTUZUMAB DERUXTECAN-NXKI
     Indication: Breast cancer metastatic
  3. UNSPECIFIED INGREDIENT [Concomitant]
     Active Substance: UNSPECIFIED INGREDIENT
     Indication: Premedication
     Dosage: UNK
     Route: 065

REACTIONS (2)
  - Endocarditis [Fatal]
  - Cardiogenic shock [Fatal]
